FAERS Safety Report 15325768 (Version 2)
Quarter: 2018Q3

REPORT INFORMATION
  Report Type: Spontaneous
  Country: FR (occurrence: FR)
  Receive Date: 20180828
  Receipt Date: 20180919
  Transmission Date: 20181010
  Serious: Yes (Other)
  Sender: FDA-Public Use
  Company Number: PHHY2018FR079316

PATIENT
  Age: 67 Year
  Sex: Male

DRUGS (5)
  1. DEXAFREE [Concomitant]
     Active Substance: DEXAMETHASONE SODIUM PHOSPHATE
     Indication: POSTOPERATIVE CARE
     Dosage: QID IN DECREASE OF 1 GTT PER WEEK DURING 1 MONTH
     Route: 065
     Dates: start: 20180115, end: 20180214
  2. TOBREX [Concomitant]
     Active Substance: TOBRAMYCIN
     Indication: POSTOPERATIVE CARE
     Dosage: UNK UNK, QID
     Route: 065
     Dates: start: 20180115
  3. STERDEX [Concomitant]
     Active Substance: DEXAMETHASONE\OXYTETRACYCLINE
     Indication: POSTOPERATIVE CARE
     Dosage: UNK IN EVENING 7 DAYS
     Route: 065
     Dates: start: 20180115, end: 20180122
  4. BSS [Suspect]
     Active Substance: CALCIUM CHLORIDE\MAGNESIUM CHLORIDE\POTASSIUM CHLORIDE\SODIUM ACETATE\SODIUM CHLORIDE\SODIUM CITRATE
     Indication: EYE IRRIGATION
     Route: 031
     Dates: start: 20180115, end: 20180115
  5. OCUFEN [Concomitant]
     Active Substance: FLURBIPROFEN SODIUM
     Indication: POSTOPERATIVE CARE
     Dosage: UNK UNK, QID DURING 1 MONTH
     Route: 065
     Dates: start: 20180115, end: 20180214

REACTIONS (1)
  - Cystoid macular oedema [Not Recovered/Not Resolved]

NARRATIVE: CASE EVENT DATE: 20180723
